FAERS Safety Report 7519628-5 (Version None)
Quarter: 2011Q2

REPORT INFORMATION
  Report Type: 
  Country: None (occurrence: None)
  Receive Date: 20110602
  Receipt Date: 20110526
  Transmission Date: 20111010
  Serious: Yes (Hospitalization)
  Sender: FDA-Public Use
  Company Number: A0929313A

PATIENT
  Age: 49 Year
  Sex: Female

DRUGS (10)
  1. LAMICTAL [Suspect]
     Indication: BIPOLAR DISORDER
     Dosage: 200MG AT NIGHT
     Route: 048
     Dates: start: 20100101, end: 20110401
  2. KLONOPIN [Concomitant]
  3. NOVOLOG [Concomitant]
  4. LISINOPRIL [Concomitant]
  5. CYMBALTA [Concomitant]
  6. PRILOSEC [Concomitant]
  7. PAXIL [Concomitant]
  8. GLIPIZIDE [Concomitant]
  9. LANTUS [Concomitant]
  10. MULTI-VITAMIN [Concomitant]

REACTIONS (1)
  - SUICIDE ATTEMPT [None]
